FAERS Safety Report 13515735 (Version 1)
Quarter: 2017Q2

REPORT INFORMATION
  Report Type: Spontaneous
  Country: FR (occurrence: FR)
  Receive Date: 20170504
  Receipt Date: 20170504
  Transmission Date: 20170830
  Serious: Yes (Hospitalization, Other)
  Sender: FDA-Public Use
  Company Number: FR-BAXTER-2017BAX019042

PATIENT
  Age: 39 Year
  Sex: Male

DRUGS (42)
  1. DOXORUBICINE TEVA [Suspect]
     Active Substance: DOXORUBICIN
     Dosage: SECOND CYCLE OF R-CHOP PROTOCOL
     Route: 042
     Dates: start: 20160425, end: 20160425
  2. DEXAMETHASONE. [Suspect]
     Active Substance: DEXAMETHASONE
     Dosage: FOURTH CYCLE OF R-DHAC PROTOCOL
     Route: 065
     Dates: start: 20160929, end: 20160929
  3. CYTARABINE. [Suspect]
     Active Substance: CYTARABINE
     Dosage: 1 CYCLE OF BEAC PROTOCOL
     Route: 065
     Dates: start: 20161108, end: 20161108
  4. CARMUSTINE [Suspect]
     Active Substance: CARMUSTINE
     Indication: B-CELL LYMPHOMA
     Dosage: 1 CYCLE OF BEAC PROTOCOL
     Route: 065
     Dates: start: 20161108, end: 20161108
  5. VINCRISTINE HOSPIRA [Suspect]
     Active Substance: VINCRISTINE
     Dosage: THIRD CYCLE OF R-CHOP PROTOCOL
     Route: 042
     Dates: start: 20160509, end: 20160509
  6. MABTHERA [Suspect]
     Active Substance: RITUXIMAB
     Indication: B-CELL LYMPHOMA
     Dosage: FIRST CYCLE OF R-CHOP PROTOCOL
     Route: 042
     Dates: start: 20160411, end: 20160411
  7. MABTHERA [Suspect]
     Active Substance: RITUXIMAB
     Dosage: SECOND CYCLE OF R-CHOP PROTOCOL
     Route: 042
     Dates: start: 20160425, end: 20160425
  8. ENDOXAN 1000 MG, POUDRE POUR SOLUTION INJECTABLE [Suspect]
     Active Substance: CYCLOPHOSPHAMIDE
     Route: 042
     Dates: start: 20161110, end: 20161110
  9. ENDOXAN 1000 MG, POUDRE POUR SOLUTION INJECTABLE [Suspect]
     Active Substance: CYCLOPHOSPHAMIDE
     Dosage: 1 CYCLE OF BEAC PROTOCOL
     Route: 042
     Dates: start: 20161108, end: 20161108
  10. ENDOXAN 1000 MG, POUDRE POUR SOLUTION INJECTABLE [Suspect]
     Active Substance: CYCLOPHOSPHAMIDE
     Dosage: 1 CYCLE OF BEAC PROTOCOL
     Route: 042
     Dates: start: 20161109, end: 20161109
  11. VINCRISTINE HOSPIRA [Suspect]
     Active Substance: VINCRISTINE
     Dosage: FOURTH CYCLE OF R-CHOP PROTOCOL
     Route: 042
     Dates: start: 20160524, end: 20160524
  12. MABTHERA [Suspect]
     Active Substance: RITUXIMAB
     Dosage: FOURTH CYCLE OF R-CHOP PROTOCOL
     Route: 042
     Dates: start: 20160524, end: 20160524
  13. DEXAMETHASONE. [Suspect]
     Active Substance: DEXAMETHASONE
     Indication: B-CELL LYMPHOMA
     Dosage: FIRST CYCLE OF R-DHAC PROTOCOL
     Route: 065
     Dates: start: 20160613, end: 20160613
  14. CYTARABINE. [Suspect]
     Active Substance: CYTARABINE
     Indication: BONE MARROW CONDITIONING REGIMEN
     Dosage: SECOND CYCLE OF R-DHAC PROTOCOL
     Route: 065
     Dates: start: 20160712, end: 20160712
  15. CYTARABINE. [Suspect]
     Active Substance: CYTARABINE
     Dosage: 1 CYCLE OF BEAC PROTOCOL
     Route: 065
     Dates: start: 20161109, end: 20161109
  16. CARMUSTINE [Suspect]
     Active Substance: CARMUSTINE
     Indication: BONE MARROW CONDITIONING REGIMEN
     Dosage: 1 CYCLE OF BEAC PROTOCOL
     Route: 065
     Dates: start: 20161109, end: 20161109
  17. DOXORUBICINE TEVA [Suspect]
     Active Substance: DOXORUBICIN
     Indication: B-CELL LYMPHOMA
     Dosage: FIRST CYCLE OF R-CHOP PROTOCOL, CUMULATIVE DOSE 428 MG
     Route: 042
     Dates: start: 20160411, end: 20160411
  18. VINCRISTINE HOSPIRA [Suspect]
     Active Substance: VINCRISTINE
     Indication: B-CELL LYMPHOMA
     Dosage: FIRST CYCLE OF R-CHOP PROTOCOL
     Route: 042
     Dates: start: 20160411, end: 20160411
  19. MABTHERA [Suspect]
     Active Substance: RITUXIMAB
     Dosage: THIRD CYCLE OF R-CHOP PROTOCOL
     Route: 042
     Dates: start: 20160509, end: 20160509
  20. MABTHERA [Suspect]
     Active Substance: RITUXIMAB
     Dosage: FOURTH CYCLE OF R-DHAC PROTOCOL
     Route: 042
     Dates: start: 20160929, end: 20160929
  21. DEXAMETHASONE. [Suspect]
     Active Substance: DEXAMETHASONE
     Dosage: SECOND CYCLE OF R-DHAC PROTOCOL
     Route: 065
     Dates: start: 20160712, end: 20160712
  22. DEXAMETHASONE. [Suspect]
     Active Substance: DEXAMETHASONE
     Dosage: THIRD CYCLE OF R-DHAC PROTOCOL
     Route: 065
     Dates: start: 20160817, end: 20160817
  23. CYTARABINE. [Suspect]
     Active Substance: CYTARABINE
     Dosage: THIRD CYCLE OF R-DHAC PROTOCOL
     Route: 065
     Dates: start: 20160817, end: 20160817
  24. CYTARABINE. [Suspect]
     Active Substance: CYTARABINE
     Dosage: FOURTH CYCLE OF R-DHAC PROTOCOL
     Route: 065
     Dates: start: 20160929, end: 20160929
  25. OXALIPLATIN. [Suspect]
     Active Substance: OXALIPLATIN
     Dosage: SECOND CYCLE OF R-DHAC PROTOCOL
     Route: 065
     Dates: start: 20160712, end: 20160712
  26. OXALIPLATIN. [Suspect]
     Active Substance: OXALIPLATIN
     Dosage: THIRD CYCLE OF R-DHAC PROTOCOL
     Route: 065
     Dates: start: 20160817, end: 20160817
  27. ENDOXAN 1000 MG, POUDRE POUR SOLUTION INJECTABLE [Suspect]
     Active Substance: CYCLOPHOSPHAMIDE
     Dosage: FOURTH CYCLE OF R-CHOP PROTOCOL
     Route: 042
     Dates: start: 20160524, end: 20160524
  28. VINCRISTINE HOSPIRA [Suspect]
     Active Substance: VINCRISTINE
     Dosage: SECOND CYCLE OF R-CHOP PROTOCOL
     Route: 042
     Dates: start: 20160425, end: 20160425
  29. MABTHERA [Suspect]
     Active Substance: RITUXIMAB
     Dosage: FIRST CYCLE OF R-DHAC PROTOCOL
     Route: 042
     Dates: start: 20160613, end: 20160613
  30. MABTHERA [Suspect]
     Active Substance: RITUXIMAB
     Dosage: SECOND CYCLE OF R-DHAC PROTOCOL
     Route: 042
     Dates: start: 20160712, end: 20160712
  31. CYTARABINE. [Suspect]
     Active Substance: CYTARABINE
     Indication: B-CELL LYMPHOMA
     Dosage: FIRST CYCLE OF R-DHAC PROTOCOL
     Route: 065
     Dates: start: 20160613, end: 20160613
  32. VERATRAN [Concomitant]
     Active Substance: CLOTIAZEPAM
     Indication: PRODUCT USED FOR UNKNOWN INDICATION
     Dosage: OCCASIONALLY
     Route: 065
  33. ENDOXAN 1000 MG, POUDRE POUR SOLUTION INJECTABLE [Suspect]
     Active Substance: CYCLOPHOSPHAMIDE
     Indication: B-CELL LYMPHOMA
     Dosage: FIRST CYCLE OF R-CHOP PROTOCOL, CUMULATIVE DOSE 19300 MG
     Route: 042
     Dates: start: 20160411, end: 20160411
  34. ENDOXAN 1000 MG, POUDRE POUR SOLUTION INJECTABLE [Suspect]
     Active Substance: CYCLOPHOSPHAMIDE
     Indication: BONE MARROW CONDITIONING REGIMEN
     Dosage: SECOND CYCLE OF R-CHOP PROTOCOL
     Route: 042
     Dates: start: 20160425, end: 20160425
  35. DOXORUBICINE TEVA [Suspect]
     Active Substance: DOXORUBICIN
     Dosage: FOURTH CYCLE OF R-CHOP PROTOCOL
     Route: 042
     Dates: start: 20160524, end: 20160524
  36. OXALIPLATIN. [Suspect]
     Active Substance: OXALIPLATIN
     Indication: B-CELL LYMPHOMA
     Dosage: FIRST CYCLE OF R-DHAC PROTOCOL
     Route: 065
     Dates: start: 20160613, end: 20160613
  37. OXALIPLATIN. [Suspect]
     Active Substance: OXALIPLATIN
     Dosage: FOURTH CYCLE OF R-DHAC PROTOCOL
     Route: 065
     Dates: start: 20160929, end: 20160929
  38. ENDOXAN 1000 MG, POUDRE POUR SOLUTION INJECTABLE [Suspect]
     Active Substance: CYCLOPHOSPHAMIDE
     Dosage: THIRD CYCLE OF R-CHOP PROTOCOL
     Route: 042
     Dates: start: 20160509, end: 20160509
  39. CELLTOP 50 MG, CAPSULE [Suspect]
     Active Substance: ETOPOSIDE
     Indication: B-CELL LYMPHOMA
     Dosage: 1 CYCLE OF BEAC PROTOCOL
     Route: 065
     Dates: start: 20161108, end: 20161108
  40. CELLTOP 50 MG, CAPSULE [Suspect]
     Active Substance: ETOPOSIDE
     Indication: BONE MARROW CONDITIONING REGIMEN
     Dosage: 1 CYCLE OF BEAC PROTOCOL
     Route: 065
     Dates: start: 20161109, end: 20161109
  41. DOXORUBICINE TEVA [Suspect]
     Active Substance: DOXORUBICIN
     Dosage: THIRD CYCLE OF R-CHOP PROTOCOL
     Route: 042
     Dates: start: 20160509, end: 20160509
  42. MABTHERA [Suspect]
     Active Substance: RITUXIMAB
     Dosage: THIRD CYCLE OF R-DHAC PROTOCOL
     Route: 042
     Dates: start: 20160817, end: 20160817

REACTIONS (5)
  - Hypertension [Not Recovered/Not Resolved]
  - Cardiomyopathy [Not Recovered/Not Resolved]
  - Drug effect decreased [Unknown]
  - Cardiac failure [Not Recovered/Not Resolved]
  - Sinus tachycardia [Not Recovered/Not Resolved]

NARRATIVE: CASE EVENT DATE: 20170302
